FAERS Safety Report 5719273-8 (Version None)
Quarter: 2008Q2

REPORT INFORMATION
  Report Type: 
  Country: None (occurrence: None)
  Receive Date: 20080428
  Receipt Date: 20080422
  Transmission Date: 20081010
  Serious: Yes (Other)
  Sender: FDA-Public Use
  Company Number: PHEH2007US04820

PATIENT
  Age: 6 Year
  Sex: Male

DRUGS (1)
  1. ELIDEL [Suspect]
     Indication: ECZEMA
     Route: 061

REACTIONS (1)
  - ACUTE LYMPHOCYTIC LEUKAEMIA [None]
